FAERS Safety Report 15567548 (Version 1)
Quarter: 2018Q4

REPORT INFORMATION
  Report Type: Spontaneous
  Country: FR (occurrence: FR)
  Receive Date: 20181030
  Receipt Date: 20181030
  Transmission Date: 20190205
  Serious: Yes (Hospitalization)
  Sender: FDA-Public Use
  Company Number: FR-PFIZER INC-2018430044

PATIENT
  Age: 17 Year
  Sex: Male

DRUGS (4)
  1. SPASFON [PHLOROGLUCINOL] [Suspect]
     Active Substance: PHLOROGLUCINOL
     Dosage: 6 DF, SINGLE
     Route: 048
     Dates: start: 20180903, end: 20180903
  2. PARACETAMOL [Suspect]
     Active Substance: ACETAMINOPHEN
     Dosage: 70 G, SINGLE
     Route: 048
     Dates: start: 20180903, end: 20180903
  3. ALPRAZOLAM. [Suspect]
     Active Substance: ALPRAZOLAM
     Dosage: 0.25 MG, SINGLE
     Route: 048
     Dates: start: 20180903, end: 20180903
  4. AUGMENTIN [Suspect]
     Active Substance: AMOXICILLIN\CLAVULANATE POTASSIUM
     Dosage: 6 DF, SINGLE
     Route: 048
     Dates: start: 20180903, end: 20180903

REACTIONS (2)
  - Nausea [Recovered/Resolved]
  - Poisoning deliberate [Unknown]

NARRATIVE: CASE EVENT DATE: 20180903
